FAERS Safety Report 19307385 (Version 11)
Quarter: 2021Q3

REPORT INFORMATION
  Report Type: Report from Study
  Country: US (occurrence: US)
  Receive Date: 20210526
  Receipt Date: 20210908
  Transmission Date: 20211014
  Serious: Yes (Hospitalization)
  Sender: FDA-Public Use
  Company Number: US-EISAI MEDICAL RESEARCH-EC-2021-093251

PATIENT
  Age: 68 Year
  Sex: Male
  Weight: 71.9 kg

DRUGS (11)
  1. ATORVASTATIN [Concomitant]
     Active Substance: ATORVASTATIN
     Dates: start: 20160520
  2. GLUCOSAMINE SULFATE [Concomitant]
     Active Substance: GLUCOSAMINE SULFATE
     Dates: start: 201901
  3. LENVATINIB [Suspect]
     Active Substance: LENVATINIB
     Dosage: 4 MG, FLUCTUATED DOSAGE
     Route: 048
     Dates: start: 20210526
  4. PEMBROLIZUMAB. [Suspect]
     Active Substance: PEMBROLIZUMAB
     Route: 042
     Dates: start: 20210525
  5. VERAPAMIL HYDROCHLORIDE. [Concomitant]
     Active Substance: VERAPAMIL HYDROCHLORIDE
     Dates: start: 20200609
  6. LORAZEPAM. [Concomitant]
     Active Substance: LORAZEPAM
     Dates: start: 20201210
  7. LENVATINIB [Suspect]
     Active Substance: LENVATINIB
     Indication: BILE DUCT CANCER
     Route: 048
     Dates: start: 20210504, end: 20210517
  8. PRINIVIL [Concomitant]
     Active Substance: LISINOPRIL
     Dates: start: 20200609, end: 20210615
  9. ELECTROLYTES NOS;SODIUM LACTATE [Concomitant]
     Dates: start: 20210518, end: 20210518
  10. PRINIVIL [Concomitant]
     Active Substance: LISINOPRIL
     Dates: start: 20210516
  11. PEMBROLIZUMAB. [Suspect]
     Active Substance: PEMBROLIZUMAB
     Indication: BILE DUCT CANCER
     Route: 042
     Dates: start: 20210504, end: 20210504

REACTIONS (1)
  - Blood bilirubin increased [Recovered/Resolved]

NARRATIVE: CASE EVENT DATE: 20210518
